FAERS Safety Report 25262596 (Version 3)
Quarter: 2025Q2

REPORT INFORMATION
  Report Type: Spontaneous
  Country: US (occurrence: US)
  Receive Date: 20250502
  Receipt Date: 20250612
  Transmission Date: 20250716
  Serious: No
  Sender: LUPIN
  Company Number: US-LUPIN PHARMACEUTICALS INC.-2025-03634

PATIENT
  Sex: Female

DRUGS (1)
  1. BUPROPION HYDROCHLORIDE [Suspect]
     Active Substance: BUPROPION HYDROCHLORIDE
     Indication: Depression
     Dosage: 75 MILLIGRAM, BID
     Route: 065

REACTIONS (6)
  - Insomnia [Recovered/Resolved]
  - Panic attack [Recovered/Resolved]
  - Product substitution issue [Unknown]
  - Self-injurious ideation [Unknown]
  - Therapeutic response shortened [Unknown]
  - Product quality issue [Unknown]
